FAERS Safety Report 24716210 (Version 2)
Quarter: 2024Q4

REPORT INFORMATION
  Report Type: Spontaneous
  Country: AU (occurrence: AU)
  Receive Date: 20241210
  Receipt Date: 20241216
  Transmission Date: 20250115
  Serious: Yes (Death, Hospitalization, Other)
  Sender: ADC THERAPEUTICS
  Company Number: AU-BIOVITRUM-2024-AU-015447

PATIENT
  Sex: Male

DRUGS (2)
  1. ZYNLONTA [Suspect]
     Active Substance: LONCASTUXIMAB TESIRINE-LPYL
     Indication: Product used for unknown indication
     Dosage: UNK
  2. ZYNLONTA [Suspect]
     Active Substance: LONCASTUXIMAB TESIRINE-LPYL
     Dosage: UNK
     Dates: start: 20240830, end: 20240830

REACTIONS (7)
  - Death [Fatal]
  - COVID-19 [Unknown]
  - Delirium [Unknown]
  - Atrial fibrillation [Unknown]
  - Hypogammaglobulinaemia [Unknown]
  - Pleural effusion [Unknown]
  - Condition aggravated [Unknown]

NARRATIVE: CASE EVENT DATE: 20241004
